FAERS Safety Report 6334568-5 (Version None)
Quarter: 2009Q3

REPORT INFORMATION
  Report Type: 
  Country: None (occurrence: None)
  Receive Date: 20090831
  Receipt Date: 20090821
  Transmission Date: 20100115
  Serious: No
  Sender: FDA-Public Use
  Company Number: PHEH2009US09781

PATIENT
  Sex: Male

DRUGS (5)
  1. TASIGNA [Suspect]
     Indication: CHRONIC MYELOID LEUKAEMIA
     Dosage: 400 MG, BID
     Route: 048
     Dates: start: 20080401
  2. LUNESTA [Concomitant]
     Dosage: UNK, UNK
  3. SYNTHROID [Concomitant]
     Dosage: UNK, UNK
  4. LOMOTIL [Concomitant]
     Dosage: UNK, UNK
  5. DEXAMETHASONE [Concomitant]
     Dosage: UNK, UNK

REACTIONS (3)
  - ADVERSE DRUG REACTION [None]
  - INCORRECT DOSE ADMINISTERED [None]
  - MEDICATION ERROR [None]
